FAERS Safety Report 12171849 (Version 5)
Quarter: 2017Q3

REPORT INFORMATION
  Report Type: Spontaneous
  Country: US (occurrence: US)
  Receive Date: 20160311
  Receipt Date: 20170821
  Transmission Date: 20171127
  Serious: Yes (Hospitalization, Other)
  Sender: FDA-Public Use
  Company Number: PHHY2016US029828

PATIENT
  Age: 34 Year
  Sex: Female

DRUGS (7)
  1. MORPHINE [Suspect]
     Active Substance: MORPHINE
     Indication: MUSCLE SPASTICITY
     Dosage: 8.502 MG, QD
     Route: 037
  2. MORPHINE [Suspect]
     Active Substance: MORPHINE
     Dosage: UNK
     Route: 037
  3. BACLOFEN INTRATHECAL [Suspect]
     Active Substance: BACLOFEN
     Dosage: 255.07 UG, QD
     Route: 037
  4. BUPIVACAINE. [Suspect]
     Active Substance: BUPIVACAINE
     Indication: MUSCLE SPASTICITY
     Dosage: 17.005 MG, QD
     Route: 037
  5. BACLOFEN INTRATHECAL [Suspect]
     Active Substance: BACLOFEN
     Indication: MUSCLE SPASTICITY
     Dosage: UNK
     Route: 037
  6. TRAMADOL. [Suspect]
     Active Substance: TRAMADOL
     Indication: PRODUCT USED FOR UNKNOWN INDICATION
     Dosage: UNK
     Route: 048
  7. DIAZEPAM. [Suspect]
     Active Substance: DIAZEPAM
     Indication: PRODUCT USED FOR UNKNOWN INDICATION
     Dosage: UNK
     Route: 048

REACTIONS (12)
  - Arthritis [Unknown]
  - Pain [Unknown]
  - Therapy non-responder [Unknown]
  - Drug dependence [Unknown]
  - Malaise [Unknown]
  - Respiratory arrest [Unknown]
  - Multiple sclerosis relapse [Unknown]
  - Therapeutic response unexpected [Unknown]
  - Sensitivity to weather change [Unknown]
  - Overdose [Unknown]
  - Muscle spasticity [Unknown]
  - Withdrawal syndrome [Unknown]

NARRATIVE: CASE EVENT DATE: 20060809
